FAERS Safety Report 23665080 (Version 1)
Quarter: 2024Q1

REPORT INFORMATION
  Report Type: Spontaneous
  Country: SI (occurrence: SI)
  Receive Date: 20240322
  Receipt Date: 20240322
  Transmission Date: 20240410
  Serious: Yes (Other)
  Sender: FDA-Public Use
  Company Number: SI-BAYER-2024A039925

PATIENT
  Age: 70 Year
  Sex: Female

DRUGS (12)
  1. FINERENONE [Suspect]
     Active Substance: FINERENONE
     Indication: Type 2 diabetes mellitus
     Dosage: 10 MG
  2. FINERENONE [Suspect]
     Active Substance: FINERENONE
     Indication: Chronic kidney disease
  3. METFORMIN [Concomitant]
     Active Substance: METFORMIN HYDROCHLORIDE
  4. FUROSEMIDE [Concomitant]
     Active Substance: FUROSEMIDE
  5. PERINDOPRIL [Concomitant]
     Active Substance: PERINDOPRIL
  6. PANTOPRAZOLE [Concomitant]
     Active Substance: PANTOPRAZOLE
  7. AMLODIPINE [Concomitant]
     Active Substance: AMLODIPINE BESYLATE
  8. BISOPROLOL [Concomitant]
     Active Substance: BISOPROLOL\BISOPROLOL FUMARATE
  9. ROSUVASTATIN [Concomitant]
     Active Substance: ROSUVASTATIN
  10. INSULIN ASPART [Concomitant]
     Active Substance: INSULIN ASPART
  11. INSULIN DEGLUDEC [Concomitant]
     Active Substance: INSULIN DEGLUDEC
  12. LEVOTHYROXINE [Concomitant]
     Active Substance: LEVOTHYROXINE\LEVOTHYROXINE SODIUM

REACTIONS (1)
  - Albuminuria [None]
